FAERS Safety Report 10233833 (Version 1)
Quarter: 2014Q2

REPORT INFORMATION
  Report Type: Spontaneous
  Country: US (occurrence: US)
  Receive Date: 20140612
  Receipt Date: 20140612
  Transmission Date: 20141212
  Serious: No
  Sender: FDA-Public Use
  Company Number: US-B.I. PHARMACEUTICALS,INC./RIDGEFIELD-2014-BI-24881BP

PATIENT
  Sex: Female

DRUGS (5)
  1. ZANTAC 150 (RANITIDINE HYDROCHLORIDE) [Suspect]
     Indication: DYSPEPSIA
     Dosage: 450 MG
     Route: 048
     Dates: start: 2013, end: 2013
  2. ZANTAC 150 (RANITIDINE HYDROCHLORIDE) [Suspect]
     Indication: DYSPEPSIA
  3. ZANTAC 75 (RANITIDINE HYDROCHLORIDE) [Suspect]
     Indication: DYSPEPSIA
     Dosage: 150 MG
     Route: 048
     Dates: start: 2013
  4. ZANTAC 75 (RANITIDINE HYDROCHLORIDE) [Suspect]
     Indication: DYSPEPSIA
  5. ALIGN PROBIOTIC [Concomitant]
     Route: 048
     Dates: start: 2013, end: 2014

REACTIONS (2)
  - Abdominal distension [Recovered/Resolved]
  - Incorrect drug administration duration [Not Recovered/Not Resolved]
